FAERS Safety Report 4702298-9 (Version None)
Quarter: 2005Q2

REPORT INFORMATION
  Report Type: 
  Country: None (occurrence: None)
  Receive Date: 20050628
  Receipt Date: 20050628
  Transmission Date: 20051028
  Serious: Yes (Other)
  Sender: FDA-Public Use
  Company Number: None

PATIENT
  Age: 30 Year
  Sex: Female
  Weight: 61.2356 kg

DRUGS (1)
  1. CYCLOCORT [Suspect]
     Indication: DERMATITIS
     Dosage: 2   DAY   TOPICAL
     Route: 061
     Dates: start: 20050520, end: 20050615

REACTIONS (5)
  - ANAL FISSURE [None]
  - GASTROINTESTINAL DISORDER [None]
  - HAEMORRHOIDS [None]
  - LOCAL SWELLING [None]
  - PAIN [None]
